FAERS Safety Report 10703753 (Version 1)
Quarter: 2015Q1

REPORT INFORMATION
  Report Type: Spontaneous
  Country: IT (occurrence: None)
  Receive Date: 20150108
  Receipt Date: 20150108
  Transmission Date: 20150721
  Serious: Yes (Hospitalization)
  Sender: FDA-Public Use
  Company Number: IPC201412-000730

PATIENT
  Age: 70 Year
  Sex: Male
  Weight: 75 kg

DRUGS (4)
  1. HYDROCHLOROTHIAZIDE (HYDROCHLOROTHIAZIDE) (HYDROCHLOROTHIAZIDE) [Suspect]
     Active Substance: HYDROCHLOROTHIAZIDE
     Dosage: 12.5 MG PER DAY
  2. IRBESARTAN (IRBESARTAN) (IRBESARTAN) [Suspect]
     Active Substance: IRBESARTAN
     Dosage: 150 MG PER DAY
  3. METFORMIN HYDROCHLORIDE. [Suspect]
     Active Substance: METFORMIN HYDROCHLORIDE
     Dosage: 3000 MG PER DAY?
  4. TAMSULOSIN [Concomitant]
     Active Substance: TAMSULOSIN

REACTIONS (7)
  - Lactic acidosis [None]
  - Gastrointestinal stoma complication [None]
  - Acute kidney injury [None]
  - Depressed level of consciousness [None]
  - Dehydration [None]
  - Electrolyte depletion [None]
  - Haemodialysis [None]
